FAERS Safety Report 21516465 (Version 2)
Quarter: 2023Q1

REPORT INFORMATION
  Report Type: Spontaneous
  Country: US (occurrence: US)
  Receive Date: 20221027
  Receipt Date: 20230104
  Transmission Date: 20230418
  Serious: No
  Sender: FDA-Public Use
  Company Number: US-BIOMARINAP-US-2022-146364

PATIENT

DRUGS (2)
  1. NAGLAZYME [Suspect]
     Active Substance: GALSULFASE
     Indication: Mucopolysaccharidosis VI
     Dosage: 50 MILLIGRAM, QW
     Route: 042
     Dates: start: 2013
  2. NAGLAZYME [Suspect]
     Active Substance: GALSULFASE
     Dosage: UNK UNK, QW
     Route: 042
     Dates: start: 2008

REACTIONS (3)
  - Respiratory tract infection [Unknown]
  - Nasopharyngitis [Recovered/Resolved]
  - Illness [Unknown]
